FAERS Safety Report 5853065-4 (Version None)
Quarter: 2008Q3

REPORT INFORMATION
  Report Type: 
  Country: None (occurrence: None)
  Receive Date: 20080821
  Receipt Date: 20080811
  Transmission Date: 20090109
  Serious: Yes (Hospitalization)
  Sender: FDA-Public Use
  Company Number: FI-AMGEN-UK282335

PATIENT
  Sex: Male

DRUGS (4)
  1. PANITUMUMAB - STUDY PROCEDURE [Suspect]
  2. PANITUMUMAB [Suspect]
     Indication: SQUAMOUS CELL CARCINOMA
     Route: 042
     Dates: start: 20080407, end: 20080519
  3. RADIATION THERAPY [Suspect]
  4. CISPLATIN [Suspect]

REACTIONS (3)
  - CANDIDIASIS [None]
  - DEHYDRATION [None]
  - MUCOSAL INFLAMMATION [None]
